FAERS Safety Report 15632061 (Version 1)
Quarter: 2018Q4

REPORT INFORMATION
  Report Type: Report from Study
  Country: BR (occurrence: BR)
  Receive Date: 20181119
  Receipt Date: 20181119
  Transmission Date: 20190205
  Serious: Yes (Hospitalization, Other)
  Sender: FDA-Public Use
  Company Number: BR-JNJFOC-20170807171

PATIENT
  Sex: Female

DRUGS (6)
  1. AZATHIOPRINE. [Concomitant]
     Active Substance: AZATHIOPRINE
     Route: 065
  2. REMICADE [Suspect]
     Active Substance: INFLIXIMAB
     Indication: CROHN^S DISEASE
     Route: 042
     Dates: start: 2004
  3. FLUOXETINE [Concomitant]
     Active Substance: FLUOXETINE HYDROCHLORIDE
     Indication: DEPRESSION
     Route: 065
  4. METFORMINE [Concomitant]
     Active Substance: METFORMIN HYDROCHLORIDE
     Route: 065
  5. REMICADE [Suspect]
     Active Substance: INFLIXIMAB
     Indication: CROHN^S DISEASE
     Route: 042
     Dates: start: 20171117
  6. SIMVASTATINE [Concomitant]
     Active Substance: SIMVASTATIN
     Route: 065

REACTIONS (10)
  - Herpes zoster [Recovered/Resolved]
  - Gastrointestinal stoma output increased [Unknown]
  - Heart rate increased [Unknown]
  - Asthma [Unknown]
  - Hypertension [Unknown]
  - Ileostomy [Recovering/Resolving]
  - Crohn^s disease [Not Recovered/Not Resolved]
  - Mood altered [Unknown]
  - Pulmonary mass [Unknown]
  - Catheter placement [Unknown]

NARRATIVE: CASE EVENT DATE: 2004
